FAERS Safety Report 7231661-X (Version None)
Quarter: 2011Q1

REPORT INFORMATION
  Report Type: 
  Country: None (occurrence: None)
  Receive Date: 20110118
  Receipt Date: 20110107
  Transmission Date: 20110831
  Serious: Yes (Hospitalization, Other)
  Sender: FDA-Public Use
  Company Number: PHEH2007US03406

PATIENT
  Sex: Male

DRUGS (28)
  1. MULTIPLE VITAMINS [Concomitant]
  2. METAMUCIL-2 [Concomitant]
     Dosage: 0.52 G, UNK
  3. EFFEXOR XR [Concomitant]
     Dosage: 37.5 UNK, UNK
  4. DECORTIN [Concomitant]
  5. PRILOSEC [Concomitant]
  6. ATIVAN [Concomitant]
  7. LEXAPRO [Concomitant]
  8. TYLENOL [Concomitant]
  9. PROPRANOLOL [Concomitant]
  10. ASPIRIN [Concomitant]
  11. ANDROGEL [Concomitant]
     Dosage: UNK
  12. LOPID [Concomitant]
  13. ZOLOFT [Concomitant]
  14. NEURONTIN [Concomitant]
  15. FISH OIL [Concomitant]
     Dosage: 500 MG, UNK
  16. MORPHINE [Concomitant]
     Dosage: UNK
  17. INFLUENZA VIRUS VACCINE [Concomitant]
  18. AREDIA [Suspect]
  19. TRAZODONE [Concomitant]
  20. HYDROCORTISONE [Concomitant]
  21. ZOMETA [Suspect]
  22. TESTIM [Concomitant]
     Dosage: UNK
  23. ASPIRIN [Concomitant]
  24. WELLBUTRIN XL [Concomitant]
  25. OXYCODONE [Concomitant]
  26. ATIVAN [Concomitant]
  27. LOPID [Concomitant]
  28. DOXYCYCLINE [Concomitant]

REACTIONS (52)
  - STRESS [None]
  - WEIGHT DECREASED [None]
  - ERECTILE DYSFUNCTION [None]
  - PLASMACYTOSIS [None]
  - PERITONEAL DISORDER [None]
  - HERPES ZOSTER [None]
  - CANCER PAIN [None]
  - GENERAL PHYSICAL HEALTH DETERIORATION [None]
  - ANXIETY [None]
  - OSTEONECROSIS [None]
  - URTICARIA [None]
  - CHEST DISCOMFORT [None]
  - FEBRILE NEUTROPENIA [None]
  - INTERVERTEBRAL DISC DEGENERATION [None]
  - BONE DISORDER [None]
  - OSTEOLYSIS [None]
  - OSTEONECROSIS OF JAW [None]
  - FRACTURED SACRUM [None]
  - INFLAMMATION [None]
  - DEPRESSION [None]
  - HEADACHE [None]
  - FLATULENCE [None]
  - OSTEOPENIA [None]
  - BACTERIAL INFECTION [None]
  - DEEP VEIN THROMBOSIS [None]
  - BACK PAIN [None]
  - DYSPNOEA [None]
  - POST HERPETIC NEURALGIA [None]
  - HYPERTRIGLYCERIDAEMIA [None]
  - ESSENTIAL TREMOR [None]
  - PAIN [None]
  - DYSPEPSIA [None]
  - HYPERCHOLESTEROLAEMIA [None]
  - PRIMARY HYPOGONADISM [None]
  - ATELECTASIS [None]
  - NEUROPATHY PERIPHERAL [None]
  - NAUSEA [None]
  - FACET JOINT SYNDROME [None]
  - UMBILICAL HERNIA [None]
  - METASTASES TO BONE [None]
  - COMPRESSION FRACTURE [None]
  - COUGH [None]
  - VOMITING [None]
  - FATIGUE [None]
  - ABDOMINAL PAIN [None]
  - HEPATIC STEATOSIS [None]
  - FISTULA [None]
  - THROMBOCYTOSIS [None]
  - DECREASED INTEREST [None]
  - SPINAL OSTEOARTHRITIS [None]
  - ANAEMIA [None]
  - MUSCLE STRAIN [None]
